FAERS Safety Report 7228384-X (Version None)
Quarter: 2011Q1

REPORT INFORMATION
  Report Type: 
  Country: None (occurrence: None)
  Receive Date: 20110114
  Receipt Date: 20110112
  Transmission Date: 20110831
  Serious: Yes (Hospitalization)
  Sender: FDA-Public Use
  Company Number: JP-PFIZER INC-2010149803

PATIENT
  Sex: Female
  Weight: 40.7 kg

DRUGS (5)
  1. BAKTAR [Concomitant]
     Dosage: 400 MG/80 MG PER DAY
     Route: 048
     Dates: start: 20100218
  2. ZYLORIC ^GLAXO WELLCOME^ [Concomitant]
     Dosage: 100 MG/DAY
     Route: 048
     Dates: start: 20100218
  3. PREDONINE [Concomitant]
     Dosage: 10 MG/DAY
     Route: 048
     Dates: start: 20100218
  4. VFEND [Suspect]
     Indication: BRONCHOPULMONARY ASPERGILLOSIS
     Dosage: 200 MG, 2X/DAY
     Route: 048
     Dates: start: 20100823, end: 20101026
  5. LIPITOR [Concomitant]
     Dosage: 10 MG/DAY
     Route: 048
     Dates: start: 20100218

REACTIONS (2)
  - TOXIC SKIN ERUPTION [None]
  - LIVER DISORDER [None]
